FAERS Safety Report 4821986-7 (Version None)
Quarter: 2005Q4

REPORT INFORMATION
  Report Type: 
  Country: None (occurrence: None)
  Receive Date: 20051103
  Receipt Date: 20051024
  Transmission Date: 20060501
  Serious: Yes (Life-Threatening)
  Sender: FDA-Public Use
  Company Number: EM2005-0551

PATIENT
  Age: 62 Year
  Sex: Female
  Weight: 57.0171 kg

DRUGS (5)
  1. MACROLIN [Suspect]
     Indication: HIV INFECTION
     Dosage: 9 MU QD SUBCUTAN
     Route: 058
     Dates: start: 20040301, end: 20040305
  2. VIREAD [Suspect]
     Indication: HIV INFECTION
     Dosage: 1 DF QD ORAL
     Route: 048
     Dates: start: 20020924, end: 20040607
  3. EPIVIR [Concomitant]
  4. KALETRA [Concomitant]
  5. BACTRIM DS [Concomitant]

REACTIONS (2)
  - FANCONI SYNDROME ACQUIRED [None]
  - RENAL FAILURE [None]
